FAERS Safety Report 5382730-0 (Version None)
Quarter: 2007Q3

REPORT INFORMATION
  Report Type: 
  Country: None (occurrence: None)
  Receive Date: 20070710
  Receipt Date: 20070703
  Transmission Date: 20080115
  Serious: Yes (Hospitalization, Other)
  Sender: FDA-Public Use
  Company Number: TN-AVENTIS-200610449GDDC

PATIENT
  Age: 36 Year
  Sex: Female

DRUGS (5)
  1. ARAVA [Suspect]
     Indication: POLYARTHRITIS
     Route: 048
     Dates: start: 20051223, end: 20060108
  2. PREDNISONE [Concomitant]
     Indication: POLYARTHRITIS
     Route: 048
     Dates: start: 20050101, end: 20060101
  3. INDOCIN                            /00003801/ [Concomitant]
     Indication: POLYARTHRITIS
     Route: 054
     Dates: start: 20050101, end: 20060101
  4. ANALGAN                            /00020001/ [Concomitant]
     Indication: POLYARTHRITIS
     Route: 048
     Dates: start: 20050502, end: 20060101
  5. CALPEROS                           /00944201/ [Concomitant]
     Indication: POLYARTHRITIS
     Dosage: DOSE: 2 TABLETS
     Route: 048
     Dates: start: 20050502, end: 20060101

REACTIONS (9)
  - COMPUTERISED TOMOGRAM NORMAL [None]
  - CONVULSION [None]
  - KERATITIS [None]
  - MULTI-ORGAN FAILURE [None]
  - NEUTROPENIA [None]
  - OPTIC ATROPHY [None]
  - RASH MACULO-PAPULAR [None]
  - SEPSIS [None]
  - TOXIC EPIDERMAL NECROLYSIS [None]
